FAERS Safety Report 4902038-4 (Version None)
Quarter: 2006Q1

REPORT INFORMATION
  Report Type: 
  Country: None (occurrence: None)
  Receive Date: 20060202
  Receipt Date: 20060202
  Transmission Date: 20060701
  Serious: Yes (Disabling, Other)
  Sender: FDA-Public Use
  Company Number: None

PATIENT
  Age: 38 Year
  Sex: Male
  Weight: 79.3795 kg

DRUGS (1)
  1. LEVAQUIN [Suspect]
     Indication: PNEUMONIA
     Dosage: 500MG 1XDAY PO
     Route: 048
     Dates: start: 20060109, end: 20060127

REACTIONS (16)
  - ABASIA [None]
  - ABDOMINAL DISCOMFORT [None]
  - ABDOMINAL PAIN [None]
  - ABDOMINAL RIGIDITY [None]
  - BURNING SENSATION [None]
  - CHEST PAIN [None]
  - DIARRHOEA [None]
  - DYSGEUSIA [None]
  - FAECES DISCOLOURED [None]
  - HYPOAESTHESIA [None]
  - IMPAIRED WORK ABILITY [None]
  - INFREQUENT BOWEL MOVEMENTS [None]
  - MUSCULAR WEAKNESS [None]
  - PALLOR [None]
  - PAROSMIA [None]
  - VISUAL DISTURBANCE [None]
